FAERS Safety Report 5023908-5 (Version None)
Quarter: 2006Q2

REPORT INFORMATION
  Report Type: 
  Country: None (occurrence: None)
  Receive Date: 20060426
  Receipt Date: 20060213
  Transmission Date: 20061013
  Serious: Yes (Other)
  Sender: FDA-Public Use
  Company Number: 2006022762

PATIENT
  Age: 66 Year
  Sex: Female
  Weight: 63.5036 kg

DRUGS (11)
  1. LYRICA [Suspect]
     Indication: FIBROMYALGIA
     Dosage: 50 (50 MG, 1 IN 1 D)
     Dates: start: 20060210, end: 20060212
  2. ACCUPRIL [Concomitant]
  3. COREG [Concomitant]
  4. INSPRA [Concomitant]
  5. PREVACID [Concomitant]
  6. COZAAR [Concomitant]
  7. CO Q-10 (UBIDECARENONE) [Concomitant]
  8. FISH OIL (FISH OIL) [Concomitant]
  9. ASPIRIN [Concomitant]
  10. CENTRUM (MINERALS NOS, VITAMINS NOS) [Concomitant]
  11. CALCIUM (CALCIUM) [Concomitant]

REACTIONS (2)
  - DIZZINESS [None]
  - NAUSEA [None]
